FAERS Safety Report 4305654-6 (Version None)
Quarter: 2004Q1

REPORT INFORMATION
  Report Type: 
  Country: None (occurrence: None)
  Receive Date: 20040226
  Receipt Date: 20031229
  Transmission Date: 20041129
  Serious: No
  Sender: FDA-Public Use
  Company Number: US-BRISTOL-MYERS SQUIBB COMPANY-12466504

PATIENT
  Age: 34 Year
  Sex: Male
  Weight: 124 kg

DRUGS (8)
  1. ABILIFY [Suspect]
     Indication: BIPOLAR DISORDER
     Route: 048
     Dates: start: 20031201
  2. CLOZARIL [Concomitant]
  3. BUSPAR [Concomitant]
  4. WELLBUTRIN [Concomitant]
  5. EFFEXOR [Concomitant]
  6. ATIVAN [Concomitant]
  7. PROTONIX [Concomitant]
  8. DIAMOX [Concomitant]

REACTIONS (1)
  - VISION BLURRED [None]
